FAERS Safety Report 11189593 (Version 2)
Quarter: 2015Q2

REPORT INFORMATION
  Report Type: Report from Study
  Country: JP (occurrence: JP)
  Receive Date: 20150615
  Receipt Date: 20150617
  Transmission Date: 20150821
  Serious: Yes (Hospitalization)
  Sender: FDA-Public Use
  Company Number: JP-EISAI MEDICAL RESEARCH-E7080-01569-CLI-JP

PATIENT
  Age: 53 Year
  Sex: Female
  Weight: 42 kg

DRUGS (13)
  1. LENVATINIB [Suspect]
     Active Substance: LENVATINIB
     Dates: start: 20120919, end: 20150605
  2. ACTONEL [Concomitant]
     Active Substance: RISEDRONATE SODIUM
  3. LOXOPROFEN [Concomitant]
     Active Substance: LOXOPROFEN
  4. DECADRON [Concomitant]
     Active Substance: DEXAMETHASONE
  5. LENVATINIB [Suspect]
     Active Substance: LENVATINIB
     Dates: start: 20120718, end: 20120905
  6. RENIVACE [Concomitant]
     Active Substance: ENALAPRIL
  7. LENVATINIB [Suspect]
     Active Substance: LENVATINIB
     Indication: THYROID CANCER
     Route: 048
     Dates: start: 20120515, end: 20120611
  8. LENVATINIB [Suspect]
     Active Substance: LENVATINIB
     Dates: start: 20120618, end: 20120711
  9. NOVAMIN [Concomitant]
     Active Substance: PROCHLORPERAZINE MALEATE
  10. THYRADIN S [Concomitant]
     Active Substance: LEVOTHYROXINE SODIUM
  11. AMLODIN [Concomitant]
     Active Substance: AMLODIPINE BESYLATE
  12. OXYCONTIN [Concomitant]
     Active Substance: OXYCODONE HYDROCHLORIDE
  13. FAMOTIDINE D [Concomitant]
     Active Substance: FAMOTIDINE

REACTIONS (2)
  - Decreased appetite [Not Recovered/Not Resolved]
  - Platelet count decreased [Not Recovered/Not Resolved]

NARRATIVE: CASE EVENT DATE: 20140901
